FAERS Safety Report 17864528 (Version 3)
Quarter: 2021Q2

REPORT INFORMATION
  Report Type: Report from Study
  Country: US (occurrence: US)
  Receive Date: 20200605
  Receipt Date: 20210521
  Transmission Date: 20210717
  Serious: No
  Sender: FDA-Public Use
  Company Number: US-ACADIA PHARMACEUTICALS INC.-ACA-2020-PIM-001580

PATIENT
  Age: 73 Year
  Sex: Male

DRUGS (4)
  1. SULFA [Suspect]
     Active Substance: UNSPECIFIED INGREDIENT
     Dosage: UNK
  2. NUPLAZID [Suspect]
     Active Substance: PIMAVANSERIN TARTRATE
     Indication: DELUSION
  3. NUPLAZID [Suspect]
     Active Substance: PIMAVANSERIN TARTRATE
     Indication: PARKINSON^S DISEASE PSYCHOSIS
     Dosage: 34 MILLIGRAM, QD, EVERY EVENING
     Route: 048
     Dates: start: 2020
  4. NUPLAZID [Suspect]
     Active Substance: PIMAVANSERIN TARTRATE
     Indication: HALLUCINATION

REACTIONS (4)
  - Hallucination [Not Recovered/Not Resolved]
  - Therapeutic response unexpected [Not Recovered/Not Resolved]
  - Hypersensitivity [Unknown]
  - Hallucination [Unknown]

NARRATIVE: CASE EVENT DATE: 202006
